FAERS Safety Report 10365351 (Version 1)
Quarter: 2014Q3

REPORT INFORMATION
  Report Type: Spontaneous
  Country: US (occurrence: US)
  Receive Date: 20140806
  Receipt Date: 20140806
  Transmission Date: 20150326
  Serious: Yes (Other)
  Sender: FDA-Public Use
  Company Number: US-ROCHE-1445111

PATIENT
  Age: 57 Year
  Sex: Female
  Weight: 97.5 kg

DRUGS (2)
  1. BENADRYL [Concomitant]
     Active Substance: DIPHENHYDRAMINE HYDROCHLORIDE
  2. XOLAIR [Suspect]
     Active Substance: OMALIZUMAB
     Indication: CHRONIC SPONTANEOUS URTICARIA
     Route: 058
     Dates: start: 20140728

REACTIONS (6)
  - Oropharyngeal pain [Unknown]
  - Pruritus [Unknown]
  - Dyspnoea [Unknown]
  - Headache [Unknown]
  - Swollen tongue [Unknown]
  - Cough [Unknown]

NARRATIVE: CASE EVENT DATE: 20140728
